FAERS Safety Report 11310296 (Version 9)
Quarter: 2016Q2

REPORT INFORMATION
  Report Type: Report from Study
  Country: US (occurrence: US)
  Receive Date: 20150724
  Receipt Date: 20160512
  Transmission Date: 20160815
  Serious: Yes (Hospitalization, Other)
  Sender: FDA-Public Use
  Company Number: US-MALLINCKRODT-T201503469

PATIENT
  Age: 68 Year
  Sex: Female

DRUGS (1)
  1. REPOSITORY CORTICOTROPIN INJECTION [Suspect]
     Active Substance: CORTICOTROPIN
     Indication: NEPHROTIC SYNDROME
     Dosage: 80 UNITS, TWICE PER WEEK
     Route: 058
     Dates: start: 20140917

REACTIONS (10)
  - Fluid retention [Not Recovered/Not Resolved]
  - Pulmonary oedema [Recovered/Resolved]
  - Weight decreased [Recovering/Resolving]
  - Hip fracture [Recovered/Resolved]
  - Fall [Recovered/Resolved]
  - Acute kidney injury [Not Recovered/Not Resolved]
  - Mobility decreased [Not Recovered/Not Resolved]
  - Asthenia [Not Recovered/Not Resolved]
  - Dyspnoea [Not Recovered/Not Resolved]
  - Arthropathy [Recovered/Resolved]

NARRATIVE: CASE EVENT DATE: 201506
